FAERS Safety Report 9474250 (Version 1)
Quarter: 2013Q3

REPORT INFORMATION
  Report Type: Report from Study
  Country: JP (occurrence: JP)
  Receive Date: 20130823
  Receipt Date: 20130823
  Transmission Date: 20140515
  Serious: Yes (Hospitalization)
  Sender: FDA-Public Use
  Company Number: JP-BRISTOL-MYERS SQUIBB COMPANY-19201318

PATIENT
  Age: 63 Year
  Sex: Male

DRUGS (9)
  1. CARBOPLATIN [Suspect]
     Indication: NON-SMALL CELL LUNG CANCER
     Route: 041
     Dates: start: 20130603
  2. PACLITAXEL [Suspect]
     Indication: NON-SMALL CELL LUNG CANCER
     Route: 041
     Dates: start: 20130603
  3. MICARDIS [Concomitant]
     Indication: HYPERTENSION
     Dates: start: 2005
  4. CORINAEL L [Concomitant]
     Indication: HYPERTENSION
     Dosage: 1DF=1TAB
     Dates: start: 2005
  5. FEBUXOSTAT [Concomitant]
     Indication: GOUT
     Dates: start: 2000
  6. ETHYL ICOSAPENTATE [Concomitant]
     Indication: GOUT
     Dates: start: 2000
  7. LANSOPRAZOLE [Concomitant]
     Indication: ABDOMINAL DISCOMFORT
  8. CLARITIN [Concomitant]
     Indication: RASH
     Dates: start: 20130610
  9. LENDORMIN [Concomitant]
     Indication: INSOMNIA
     Dates: start: 20130610

REACTIONS (2)
  - Vomiting [Recovering/Resolving]
  - Headache [Recovering/Resolving]
